FAERS Safety Report 6013926-2 (Version None)
Quarter: 2008Q4

REPORT INFORMATION
  Report Type: 
  Country: None (occurrence: None)
  Receive Date: 20081219
  Receipt Date: 20081215
  Transmission Date: 20090506
  Serious: Yes (Other)
  Sender: FDA-Public Use
  Company Number: GB-MERCK-0812GBR00068

PATIENT
  Age: 67 Year
  Sex: Male
  Weight: 92 kg

DRUGS (7)
  1. ZOCOR [Suspect]
     Indication: HYPERCHOLESTEROLAEMIA
     Route: 048
     Dates: start: 20081001, end: 20081001
  2. ASPIRIN [Concomitant]
     Indication: CARDIOVASCULAR EVENT PROPHYLAXIS
     Route: 048
  3. FOLIC ACID [Concomitant]
     Route: 048
     Dates: start: 20080101
  4. GABAPENTIN [Concomitant]
     Indication: NEURALGIA
     Route: 048
  5. INSULIN LISPRO [Concomitant]
     Indication: DIABETES MELLITUS
     Route: 065
  6. METFORMIN [Concomitant]
     Indication: DIABETES MELLITUS
     Route: 048
     Dates: start: 20010101
  7. METHOTREXATE [Concomitant]
     Indication: RHEUMATOID ARTHRITIS
     Route: 048
     Dates: start: 20080401

REACTIONS (2)
  - RHEUMATOID ARTHRITIS [None]
  - SYNOVITIS [None]
